FAERS Safety Report 8619697-5 (Version None)
Quarter: 2012Q3

REPORT INFORMATION
  Report Type: 
  Country: None (occurrence: None)
  Receive Date: 20120816
  Receipt Date: 20120816
  Transmission Date: 20120928
  Serious: No
  Sender: FDA-Public Use
  Company Number: None

PATIENT
  Age: 28 Year
  Sex: Female
  Weight: 94.8018 kg

DRUGS (1)
  1. CALDOLOR [Suspect]
     Indication: ABDOMINAL PAIN
     Dosage: 800MG ONCE IV
     Route: 042
     Dates: start: 20120625, end: 20120625

REACTIONS (1)
  - DEEP VEIN THROMBOSIS [None]
